FAERS Safety Report 4501935-1 (Version None)
Quarter: 2004Q4

REPORT INFORMATION
  Report Type: 
  Country: None (occurrence: None)
  Receive Date: 20041115
  Receipt Date: 20041115
  Transmission Date: 20050328
  Serious: Yes (Life-Threatening, Hospitalization, Disabling, Congenital Anomaly)
  Sender: FDA-Public Use
  Company Number: None

PATIENT
  Sex: Female
  Weight: 86.1834 kg

DRUGS (2)
  1. CELEBREX [Suspect]
     Indication: ARTHRITIS
     Dosage: 200 MG    DAY   ORAL
     Route: 048
     Dates: start: 19990101, end: 20040701
  2. CELEBREX [Suspect]
     Indication: BACK PAIN
     Dosage: 200 MG    DAY   ORAL
     Route: 048
     Dates: start: 19990101, end: 20040701

REACTIONS (1)
  - MYOCARDIAL INFARCTION [None]
